FAERS Safety Report 5203793-9 (Version None)
Quarter: 2007Q1

REPORT INFORMATION
  Report Type: 
  Country: None (occurrence: None)
  Receive Date: 20070109
  Receipt Date: 20070109
  Transmission Date: 20070707
  Serious: Yes (Life-Threatening, Hospitalization)
  Sender: FDA-Public Use
  Company Number: None

PATIENT
  Age: 51 Year
  Sex: Male
  Weight: 84.8226 kg

DRUGS (2)
  1. CRESTOR [Suspect]
     Indication: BLOOD CHOLESTEROL INCREASED
     Dosage: 1 TABLET DAILY PO
     Route: 048
     Dates: start: 20060104, end: 20061113
  2. BACTRIM [Suspect]
     Indication: URINARY TRACT INFECTION
     Dosage: 2 TABLETS DAILY FOR 7 DAYS 1 DAILY AFTERWARD PO
     Route: 048
     Dates: start: 20060923, end: 20061020

REACTIONS (7)
  - BACK PAIN [None]
  - EPISTAXIS [None]
  - HEADACHE [None]
  - HEPATITIS [None]
  - MUSCULAR WEAKNESS [None]
  - PAIN [None]
  - URINE ODOUR ABNORMAL [None]
